FAERS Safety Report 17305012 (Version 8)
Quarter: 2022Q4

REPORT INFORMATION
  Report Type: Spontaneous
  Country: US (occurrence: US)
  Receive Date: 20200123
  Receipt Date: 20221114
  Transmission Date: 20230112
  Serious: No
  Sender: FDA-Public Use
  Company Number: US-PFIZER INC-2020022448

PATIENT
  Age: 53 Year
  Sex: Female
  Weight: 95.25 kg

DRUGS (3)
  1. XELJANZ XR [Suspect]
     Active Substance: TOFACITINIB CITRATE
     Indication: Rheumatoid arthritis
     Dosage: 11 MG, 1X/DAY
     Route: 048
     Dates: start: 2018
  2. SYNTHROID [Concomitant]
     Active Substance: LEVOTHYROXINE SODIUM
     Indication: Thyroid disorder
     Dosage: 175 UG, 1X/DAY (STARTED 20 YEARS AGO)
     Route: 048
     Dates: start: 2000
  3. DRAMAMINE [Concomitant]
     Active Substance: DIMENHYDRINATE
     Dosage: UNK (TAKE IT ON THE WEEKEND)

REACTIONS (2)
  - Insomnia [Unknown]
  - Cold-stimulus headache [Unknown]
